FAERS Safety Report 12487844 (Version 1)
Quarter: 2016Q2

REPORT INFORMATION
  Report Type: Spontaneous
  Country: AU (occurrence: AU)
  Receive Date: 20160622
  Receipt Date: 20160622
  Transmission Date: 20160815
  Serious: Yes (Life-Threatening, Other)
  Sender: FDA-Public Use
  Company Number: AU-SCIEGEN PHARMACEUTICALS INC-2016SCILIT00224

PATIENT
  Sex: Female

DRUGS (4)
  1. LAMOTRIGINE TABLETS [Suspect]
     Active Substance: LAMOTRIGINE
     Dosage: INCREASED BY 25 MG TO A MAXIMUM OF 200 MG
     Route: 065
  2. LAMOTRIGINE TABLETS [Suspect]
     Active Substance: LAMOTRIGINE
     Dosage: 175 MG
     Route: 065
  3. LAMOTRIGINE TABLETS [Suspect]
     Active Substance: LAMOTRIGINE
     Indication: BIPOLAR II DISORDER
     Dosage: 25 MG, NOCTE FOR A WEEK
     Route: 065
  4. LAMOTRIGINE TABLETS [Suspect]
     Active Substance: LAMOTRIGINE
     Dosage: MAINTENANCE DOSE OF 200 MG
     Route: 065

REACTIONS (11)
  - Headache [Unknown]
  - Toxic epidermal necrolysis [Unknown]
  - Photosensitivity reaction [Unknown]
  - Stevens-Johnson syndrome [Unknown]
  - Rash pruritic [Recovering/Resolving]
  - Lymphadenopathy [Unknown]
  - Nausea [Unknown]
  - Drug reaction with eosinophilia and systemic symptoms [Unknown]
  - Thirst [Unknown]
  - Malaise [Unknown]
  - Dysgeusia [Unknown]
